FAERS Safety Report 9349177 (Version 1)
Quarter: 2013Q2

REPORT INFORMATION
  Report Type: Spontaneous
  Country: US (occurrence: US)
  Receive Date: 20130614
  Receipt Date: 20130614
  Transmission Date: 20140414
  Serious: Yes (Other)
  Sender: FDA-Public Use
  Company Number: US-JHP PHARMACEUTICALS, LLC-JHP201300354

PATIENT
  Age: 47 Year
  Sex: Female
  Weight: 109 kg

DRUGS (5)
  1. PITRESSIN [Suspect]
     Indication: SHOCK
     Dosage: 0.04 IU, HR
  2. NOREPINEPHRINE [Suspect]
     Indication: SHOCK
     Dosage: 200 MG, HR
  3. PHENYLEPHRINE [Suspect]
     Indication: SHOCK
     Dosage: 300 MG, HR
  4. CHARCOAL ACTIVATED [Concomitant]
     Indication: OVERDOSE
  5. CALCIUM [Concomitant]
     Indication: OVERDOSE

REACTIONS (1)
  - Drug ineffective [Recovered/Resolved]
